FAERS Safety Report 19836837 (Version 2)
Quarter: 2021Q4

REPORT INFORMATION
  Report Type: Report from Study
  Country: US (occurrence: US)
  Receive Date: 20210914
  Receipt Date: 20211006
  Transmission Date: 20220303
  Serious: Yes (Other)
  Sender: FDA-Public Use
  Company Number: US-TAKEDA-2021TUS055817

PATIENT
  Sex: Male

DRUGS (1)
  1. IXAZOMIB [Suspect]
     Active Substance: IXAZOMIB
     Indication: Plasma cell myeloma recurrent
     Dosage: 2.3 MILLIGRAM
     Route: 065

REACTIONS (3)
  - Plasma cell myeloma recurrent [Not Recovered/Not Resolved]
  - COVID-19 [Unknown]
  - Hypoacusis [Unknown]
